FAERS Safety Report 7110349-X (Version None)
Quarter: 2010Q4

REPORT INFORMATION
  Report Type: 
  Country: None (occurrence: None)
  Receive Date: 20101118
  Receipt Date: 20101112
  Transmission Date: 20110411
  Serious: No
  Sender: FDA-Public Use
  Company Number: US-PFIZER INC-2010147319

PATIENT
  Age: 10 Year
  Sex: Male
  Weight: 61.22 kg

DRUGS (3)
  1. GEODON [Suspect]
     Indication: AFFECTIVE DISORDER
     Dosage: 60 MG, 2X/DAY
     Route: 048
     Dates: start: 20101001
  2. TENEX [Concomitant]
     Indication: ATTENTION DEFICIT/HYPERACTIVITY DISORDER
     Dosage: 1 MG, 3X/DAY
     Route: 048
  3. DEPAKOTE [Concomitant]
     Indication: AFFECTIVE DISORDER
     Dosage: 250 MG, 1X/DAY
     Route: 048

REACTIONS (1)
  - SOMNOLENCE [None]
